FAERS Safety Report 14882218 (Version 1)
Quarter: 2018Q2

REPORT INFORMATION
  Report Type: Spontaneous
  Country: FR (occurrence: FR)
  Receive Date: 20180511
  Receipt Date: 20180511
  Transmission Date: 20180711
  Serious: Yes (Other)
  Sender: FDA-Public Use
  Company Number: FR-MERCK KGAA-2047628

PATIENT
  Age: 41 Year
  Sex: Female

DRUGS (1)
  1. NOVOTHYROX [Suspect]
     Active Substance: LEVOTHYROXINE SODIUM
     Indication: AUTOIMMUNE THYROIDITIS
     Dates: start: 201708

REACTIONS (22)
  - Depressed mood [None]
  - Hypertension [None]
  - Feeling guilty [None]
  - Mean cell haemoglobin decreased [None]
  - Red blood cell sedimentation rate increased [None]
  - Anxiety [None]
  - Mean cell haemoglobin concentration decreased [None]
  - Abdominal pain upper [None]
  - Headache [None]
  - Fatigue [None]
  - Migraine [None]
  - Pain [None]
  - Decreased interest [None]
  - Dizziness [None]
  - Job dissatisfaction [None]
  - Impaired work ability [None]
  - Social avoidant behaviour [None]
  - Eosinophil count decreased [None]
  - Personal relationship issue [None]
  - Tremor [None]
  - Balance disorder [None]
  - Asthenia [None]

NARRATIVE: CASE EVENT DATE: 20170908
